FAERS Safety Report 11440664 (Version 1)
Quarter: 2015Q3

REPORT INFORMATION
  Report Type: Spontaneous
  Country: US (occurrence: US)
  Receive Date: 20150821
  Receipt Date: 20150821
  Transmission Date: 20151125
  Serious: Yes (Other)
  Sender: FDA-Public Use
  Company Number: US-ELI_LILLY_AND_COMPANY-US200708000221

PATIENT
  Age: 54 Year
  Sex: Female

DRUGS (5)
  1. TOPROL XL [Concomitant]
     Active Substance: METOPROLOL SUCCINATE
  2. CYMBALTA [Suspect]
     Active Substance: DULOXETINE HYDROCHLORIDE
     Dosage: HALF OF A 60 MG CAPSULE
     Dates: start: 200707, end: 200707
  3. CYMBALTA [Suspect]
     Active Substance: DULOXETINE HYDROCHLORIDE
     Indication: GENERALISED ANXIETY DISORDER
     Dosage: 60 MG, UNK
     Dates: end: 200707
  4. CYMBALTA [Suspect]
     Active Substance: DULOXETINE HYDROCHLORIDE
     Dosage: 1/3 OF A 60 MG CAPSULE
     Dates: start: 200707, end: 20070730
  5. CRESTOR [Concomitant]
     Active Substance: ROSUVASTATIN CALCIUM
     Dosage: 10 MG, UNK

REACTIONS (6)
  - Dizziness [Not Recovered/Not Resolved]
  - Hypertensive crisis [Recovered/Resolved]
  - Feeling abnormal [Not Recovered/Not Resolved]
  - Vertigo [Not Recovered/Not Resolved]
  - Asthenia [Not Recovered/Not Resolved]
  - Feeling drunk [Not Recovered/Not Resolved]

NARRATIVE: CASE EVENT DATE: 2007
